FAERS Safety Report 10469375 (Version 2)
Quarter: 2015Q1

REPORT INFORMATION
  Report Type: Spontaneous
  Country: NO (occurrence: NO)
  Receive Date: 20140923
  Receipt Date: 20150212
  Transmission Date: 20150720
  Serious: Yes (Other)
  Sender: FDA-Public Use
  Company Number: NO-JNJFOC-20140915245

PATIENT
  Age: 58 Year
  Sex: Male

DRUGS (11)
  1. TRAMADOL HYDROCHLORIDE. [Suspect]
     Active Substance: TRAMADOL HYDROCHLORIDE
     Indication: MUSCULOSKELETAL PAIN
     Dosage: 50MG 3 TIMES A DAY
     Route: 048
     Dates: start: 201111, end: 20120709
  2. NEURONTIN [Suspect]
     Active Substance: GABAPENTIN
     Indication: MUSCULOSKELETAL PAIN
     Route: 048
     Dates: start: 201111, end: 201204
  3. IBUX [Concomitant]
     Active Substance: IBUPROFEN
     Indication: ARTHRALGIA
     Dosage: 1 EVERY DAY
     Route: 065
     Dates: end: 201110
  4. STESOLID [Concomitant]
     Active Substance: DIAZEPAM
     Indication: PRODUCT USED FOR UNKNOWN INDICATION
     Dosage: USED FOR AN UNKNOWN INDICATION
     Route: 048
     Dates: start: 201206, end: 201207
  5. NEURONTIN [Suspect]
     Active Substance: GABAPENTIN
     Indication: MUSCULOSKELETAL PAIN
     Dosage: 800MG 3 TIMES  A DAY??400MG 3 TIMES A DAY
     Route: 048
     Dates: start: 201204, end: 201208
  6. NEBIDO [Concomitant]
     Active Substance: TESTOSTERONE UNDECANOATE
     Indication: ANXIETY
     Route: 030
     Dates: start: 2009, end: 201309
  7. STESOLID [Concomitant]
     Active Substance: DIAZEPAM
     Indication: ANTISOCIAL BEHAVIOUR
     Dosage: USEF FOR ANTISOCIAL BEHAVIOUR
     Route: 048
  8. STESOLID [Concomitant]
     Active Substance: DIAZEPAM
     Indication: PRODUCT USED FOR UNKNOWN INDICATION
     Dosage: USEF FOR ANTISOCIAL BEHAVIOUR
     Route: 048
  9. STESOLID [Concomitant]
     Active Substance: DIAZEPAM
     Indication: PRODUCT USED FOR UNKNOWN INDICATION
     Dosage: USED FOR AN UNKNOWN INDICATION
     Route: 048
     Dates: start: 20120710, end: 20120713
  10. STESOLID [Concomitant]
     Active Substance: DIAZEPAM
     Indication: ANTISOCIAL BEHAVIOUR
     Dosage: USED FOR AN UNKNOWN INDICATION
     Route: 048
     Dates: start: 201206, end: 201207
  11. STESOLID [Concomitant]
     Active Substance: DIAZEPAM
     Indication: ANTISOCIAL BEHAVIOUR
     Dosage: USED FOR AN UNKNOWN INDICATION
     Route: 048
     Dates: start: 20120710, end: 20120713

REACTIONS (6)
  - Paraesthesia [Recovered/Resolved]
  - Menopause [Recovered/Resolved]
  - Mood altered [Recovered/Resolved]
  - Withdrawal syndrome [Recovered/Resolved]
  - Psychotic disorder [Recovered/Resolved]
  - Sweat gland disorder [Recovered/Resolved]

NARRATIVE: CASE EVENT DATE: 201111
